FAERS Safety Report 6092599-7 (Version None)
Quarter: 2009Q1

REPORT INFORMATION
  Report Type: 
  Country: None (occurrence: None)
  Receive Date: 20090225
  Receipt Date: 20080717
  Transmission Date: 20090719
  Serious: No
  Sender: FDA-Public Use
  Company Number: US-BRISTOL-MYERS SQUIBB COMPANY-14267025

PATIENT
  Sex: Female

DRUGS (5)
  1. KENALOG [Suspect]
     Indication: NEUROMA
     Dates: start: 20080101
  2. DEXAMETHASONE SODIUM PHOSPHATE [Suspect]
     Indication: NEUROMA
     Dates: start: 20080101
  3. MARCAINE [Suspect]
     Indication: NEUROMA
     Dates: start: 20080101
  4. ETHYL CHLORIDE [Suspect]
     Indication: LOCAL ANAESTHESIA
     Route: 061
     Dates: start: 20080101
  5. FLURBIPROFEN [Concomitant]
     Route: 048

REACTIONS (1)
  - SUNBURN [None]
